FAERS Safety Report 9301772 (Version 1)
Quarter: 2013Q2

REPORT INFORMATION
  Report Type: Spontaneous
  Country: US (occurrence: US)
  Receive Date: 20130521
  Receipt Date: 20130521
  Transmission Date: 20140414
  Serious: No
  Sender: FDA-Public Use
  Company Number: US-TEVA-337217USA

PATIENT
  Sex: Female

DRUGS (5)
  1. ACTIQ [Suspect]
     Indication: BACK PAIN
     Dosage: 200 MICROGRAM DAILY;
     Route: 002
     Dates: end: 20120423
  2. VICODIN [Concomitant]
     Indication: PAIN
     Route: 048
  3. OMEPRAZOLE [Concomitant]
     Indication: GASTROINTESTINAL DISORDER
     Route: 048
  4. TOPIRAMATE [Concomitant]
     Route: 048
  5. TIZANIDINE [Concomitant]
     Route: 048

REACTIONS (2)
  - Back pain [Not Recovered/Not Resolved]
  - Off label use [Not Recovered/Not Resolved]
